FAERS Safety Report 14734021 (Version 1)
Quarter: 2018Q2

REPORT INFORMATION
  Report Type: Spontaneous
  Country: US (occurrence: US)
  Receive Date: 20180403
  Receipt Date: 20180403
  Transmission Date: 20180711
  Serious: Yes (Other)
  Sender: FDA-Public Use
  Company Number: None

PATIENT
  Age: 64 Year
  Sex: Female
  Weight: 118.8 kg

DRUGS (9)
  1. JANUVIA [Concomitant]
     Active Substance: SITAGLIPTIN PHOSPHATE
  2. VALSARTAN. [Concomitant]
     Active Substance: VALSARTAN
  3. METFORMIN [Concomitant]
     Active Substance: METFORMIN HYDROCHLORIDE
  4. CETIRIZINE [Concomitant]
     Active Substance: CETIRIZINE HYDROCHLORIDE
  5. INVOKANA [Suspect]
     Active Substance: CANAGLIFLOZIN
     Indication: TYPE 2 DIABETES MELLITUS
     Dosage: ?          QUANTITY:1 TABLET(S);?
     Route: 048
     Dates: start: 20170404, end: 20180130
  6. VICTOZA [Concomitant]
     Active Substance: LIRAGLUTIDE
  7. ROSUVASTATIN. [Concomitant]
     Active Substance: ROSUVASTATIN
  8. SERTRALINE [Concomitant]
     Active Substance: SERTRALINE HYDROCHLORIDE
  9. PREMARIN [Concomitant]
     Active Substance: ESTROGENS, CONJUGATED

REACTIONS (10)
  - Gingival erythema [None]
  - Vulvovaginitis [None]
  - Gingival disorder [None]
  - Thirst [None]
  - Gingival blister [None]
  - Weight decreased [None]
  - Decreased appetite [None]
  - Gingivitis [None]
  - Pollakiuria [None]
  - Periodontitis [None]

NARRATIVE: CASE EVENT DATE: 20170821
